FAERS Safety Report 8859206 (Version 1)
Quarter: 2012Q4

REPORT INFORMATION
  Report Type: Spontaneous
  Country: PK (occurrence: None)
  Receive Date: 20121023
  Receipt Date: 20121023
  Transmission Date: 20130627
  Serious: Yes (Other)
  Sender: FDA-Public Use
  Company Number: PK-20120001

PATIENT
  Age: 54 Year
  Sex: Male

DRUGS (2)
  1. LIPIODOL (ETHIODIZED OIL) (ETHIODIZED OIL) [Suspect]
     Indication: THERAPEUTIC EMBOLIZATION
     Route: 013
  2. EPIRUBICIN (EPIRUBICIN) (EPIRUBICIN) [Concomitant]

REACTIONS (5)
  - Cerebral artery embolism [None]
  - Off label use [None]
  - Cerebral infarction [None]
  - Blood glucose decreased [None]
  - General physical health deterioration [None]
